FAERS Safety Report 8083290-6 (Version None)
Quarter: 2012Q1

REPORT INFORMATION
  Report Type: 
  Country: None (occurrence: None)
  Receive Date: 20120127
  Receipt Date: 20110203
  Transmission Date: 20120608
  Serious: No
  Sender: FDA-Public Use
  Company Number: US-ABBOTT-11P-163-0702627-00

PATIENT
  Age: 76 Year
  Sex: Male

DRUGS (8)
  1. ASPIRIN [Concomitant]
     Indication: RHEUMATOID ARTHRITIS
  2. LEFLUNOMIDE [Concomitant]
     Indication: IMMUNOSUPPRESSANT DRUG THERAPY
  3. MULTI-VITAMIN [Concomitant]
     Indication: RHEUMATOID ARTHRITIS
  4. HUMIRA [Suspect]
     Indication: RHEUMATOID ARTHRITIS
     Dates: start: 20090101
  5. LORTAB [Concomitant]
     Indication: ARTHRALGIA
     Dosage: 1 TABLET DAILY AS REQUIRED
  6. PREDNISONE TAB [Concomitant]
     Indication: RHEUMATOID ARTHRITIS
  7. DICLOFENAC [Concomitant]
     Indication: INFLAMMATION
  8. FISH OIL [Concomitant]
     Indication: PRODUCT USED FOR UNKNOWN INDICATION

REACTIONS (2)
  - INJECTION SITE PAIN [None]
  - INJECTION SITE EXTRAVASATION [None]
